FAERS Safety Report 21310910 (Version 2)
Quarter: 2022Q4

REPORT INFORMATION
  Report Type: Report from Study
  Country: US (occurrence: US)
  Receive Date: 20220909
  Receipt Date: 20221017
  Transmission Date: 20230113
  Serious: Yes (Hospitalization, Other)
  Sender: FDA-Public Use
  Company Number: US-BRISTOL-MYERS SQUIBB COMPANY-2022-102323

PATIENT
  Age: 75 Year
  Sex: Male
  Weight: 90.71 kg

DRUGS (4)
  1. ELIQUIS [Suspect]
     Active Substance: APIXABAN
     Indication: Cerebrovascular accident prophylaxis
     Route: 065
  2. ELIQUIS [Suspect]
     Active Substance: APIXABAN
     Route: 065
  3. ELIQUIS [Suspect]
     Active Substance: APIXABAN
     Route: 065
  4. ASPIRIN [Suspect]
     Active Substance: ASPIRIN
     Indication: Product used for unknown indication
     Route: 065

REACTIONS (6)
  - Arterial haemorrhage [Recovered/Resolved]
  - Haemoglobin decreased [Recovered/Resolved]
  - Internal haemorrhage [Unknown]
  - Intentional product use issue [Unknown]
  - Peripheral swelling [Unknown]
  - Haematoma [Unknown]

NARRATIVE: CASE EVENT DATE: 20220610
